FAERS Safety Report 24174031 (Version 2)
Quarter: 2024Q3

REPORT INFORMATION
  Report Type: Spontaneous
  Country: US (occurrence: US)
  Receive Date: 20240805
  Receipt Date: 20240822
  Transmission Date: 20241017
  Serious: No
  Sender: BAYER
  Company Number: US-BAYER-2024A110261

PATIENT
  Age: 25 Year
  Sex: Female
  Weight: 67.59 kg

DRUGS (1)
  1. SKYLA [Suspect]
     Active Substance: LEVONORGESTREL
     Indication: Contraception
     Dosage: 14?G/DAY
     Route: 015
     Dates: start: 20240513

REACTIONS (4)
  - Device placement issue [Not Recovered/Not Resolved]
  - Post procedural haemorrhage [None]
  - Procedural pain [None]
  - Device dislocation [None]

NARRATIVE: CASE EVENT DATE: 20240401
